FAERS Safety Report 7285575-X (Version None)
Quarter: 2011Q1

REPORT INFORMATION
  Report Type: 
  Country: None (occurrence: None)
  Receive Date: 20110210
  Receipt Date: 20110207
  Transmission Date: 20110831
  Serious: Yes (Hospitalization)
  Sender: FDA-Public Use
  Company Number: A0765766A

PATIENT
  Age: 50 Year
  Sex: Male
  Weight: 84.1 kg

DRUGS (8)
  1. LIPITOR [Concomitant]
  2. GLUCOPHAGE [Concomitant]
  3. FISH OIL [Concomitant]
  4. CO Q 10 [Concomitant]
  5. CELEXA [Concomitant]
  6. AVANDIA [Suspect]
     Dosage: 4MG TWICE PER DAY
     Route: 048
     Dates: start: 20040101, end: 20070601
  7. LANTUS [Concomitant]
  8. MULTIVITAMIN [Concomitant]

REACTIONS (6)
  - HEART INJURY [None]
  - ANXIETY [None]
  - CARDIAC DISORDER [None]
  - MYOCARDIAL INFARCTION [None]
  - DEPRESSION [None]
  - CARDIAC FAILURE CONGESTIVE [None]
